FAERS Safety Report 4389348-7 (Version None)
Quarter: 2004Q2

REPORT INFORMATION
  Report Type: 
  Country: None (occurrence: None)
  Receive Date: 20040630
  Receipt Date: 20040621
  Transmission Date: 20050107
  Serious: Yes (Other)
  Sender: FDA-Public Use
  Company Number: 2004218958JP

PATIENT
  Age: 40 Year
  Sex: Female

DRUGS (5)
  1. NASANYL (NAFARELIN ACETATE) SPRAY [Suspect]
     Indication: UTERINE LEIOMYOMA
     Dosage: 200 UG, BID, NASAL
     Route: 045
     Dates: start: 20031016
  2. LIORESAL [Concomitant]
  3. TOFRANIL [Concomitant]
  4. DEPAS (ETIZOLAM) [Concomitant]
  5. CEFACLOR [Concomitant]

REACTIONS (1)
  - THROMBOCYTOPENIA [None]
